FAERS Safety Report 6127274-3 (Version None)
Quarter: 2009Q1

REPORT INFORMATION
  Report Type: 
  Country: None (occurrence: None)
  Receive Date: 20090319
  Receipt Date: 20090305
  Transmission Date: 20090719
  Serious: Yes (Hospitalization)
  Sender: FDA-Public Use
  Company Number: 02100-JPN-06-0509

PATIENT
  Age: 53 Year
  Sex: Male

DRUGS (5)
  1. PLAVIX [Suspect]
     Indication: CEREBRAL INFARCTION
     Dosage: 75 MG, DAILY DOSE ORAL
     Route: 048
     Dates: start: 20060204, end: 20060905
  2. ASPIRIN [Concomitant]
  3. PLETAL [Concomitant]
  4. BACLOFEN [Concomitant]
  5. ATORVASTATIN CALCIUM [Concomitant]

REACTIONS (6)
  - CEREBRAL INFARCTION [None]
  - DYSPHONIA [None]
  - INTRACRANIAL ANEURYSM [None]
  - THROMBOSIS [None]
  - TRANSIENT ISCHAEMIC ATTACK [None]
  - VERTEBRAL ARTERY STENOSIS [None]
